FAERS Safety Report 7088951-3 (Version None)
Quarter: 2010Q4

REPORT INFORMATION
  Report Type: 
  Country: None (occurrence: None)
  Receive Date: 20101029
  Receipt Date: 20101018
  Transmission Date: 20110411
  Serious: Yes (Death, Hospitalization)
  Sender: FDA-Public Use
  Company Number: B0681251A

PATIENT
  Age: 55 Year
  Sex: Male

DRUGS (3)
  1. PAXIL [Suspect]
     Dosage: 25 MG / PER DAY / ORAL
     Route: 048
  2. PAXIL [Suspect]
     Dosage: ORAL
     Route: 048
  3. BUPROPION HYDROCHLORIDE [Concomitant]

REACTIONS (24)
  - ANTIDEPRESSANT DRUG LEVEL ABOVE THERAPEUTIC [None]
  - BIFASCICULAR BLOCK [None]
  - BLOOD ALBUMIN DECREASED [None]
  - BLOOD CREATINE PHOSPHOKINASE INCREASED [None]
  - BUNDLE BRANCH BLOCK LEFT [None]
  - BUNDLE BRANCH BLOCK RIGHT [None]
  - CSF PROTEIN INCREASED [None]
  - DISTURBANCE IN ATTENTION [None]
  - DRUG INTERACTION [None]
  - DYSARTHRIA [None]
  - ELECTROCARDIOGRAM QT PROLONGED [None]
  - ENCEPHALOPATHY [None]
  - LOSS OF EMPLOYMENT [None]
  - NEUROLEPTIC MALIGNANT SYNDROME [None]
  - OVERDOSE [None]
  - PNEUMONIA ASPIRATION [None]
  - PREALBUMIN DECREASED [None]
  - PULMONARY EMBOLISM [None]
  - PULSE ABSENT [None]
  - RESUSCITATION [None]
  - SEROTONIN SYNDROME [None]
  - SUICIDE ATTEMPT [None]
  - TREMOR [None]
  - WHITE BLOOD CELL COUNT INCREASED [None]
